FAERS Safety Report 5823804-7 (Version None)
Quarter: 2008Q3

REPORT INFORMATION
  Report Type: 
  Country: None (occurrence: None)
  Receive Date: 20080725
  Receipt Date: 20080715
  Transmission Date: 20090109
  Serious: Yes (Other)
  Sender: FDA-Public Use
  Company Number: US-PFIZER INC-2008060090

PATIENT
  Sex: Female
  Weight: 72.6 kg

DRUGS (5)
  1. LYRICA [Suspect]
     Indication: FIBROMYALGIA
     Route: 048
  2. PREMARIN [Concomitant]
  3. ALL OTHER THERAPEUTIC PRODUCTS [Concomitant]
  4. NAPROXEN [Concomitant]
  5. SODIUM [Concomitant]

REACTIONS (3)
  - HIGH DENSITY LIPOPROTEIN INCREASED [None]
  - SINUS OPERATION [None]
  - WEIGHT INCREASED [None]
